FAERS Safety Report 6922849-3 (Version None)
Quarter: 2010Q3

REPORT INFORMATION
  Report Type: 
  Country: None (occurrence: None)
  Receive Date: 20100813
  Receipt Date: 20100803
  Transmission Date: 20110219
  Serious: Yes (Other)
  Sender: FDA-Public Use
  Company Number: US-PFIZER INC-2010098126

PATIENT
  Sex: Male

DRUGS (1)
  1. GENOTROPIN [Suspect]
     Indication: GROWTH HORMONE DEFICIENCY
     Dosage: 8 MG, DAILY
     Dates: start: 20100501

REACTIONS (3)
  - CONDITION AGGRAVATED [None]
  - JOINT SWELLING [None]
  - OEDEMA PERIPHERAL [None]
